FAERS Safety Report 10354177 (Version 2)
Quarter: 2014Q3

REPORT INFORMATION
  Report Type: Spontaneous
  Country: US (occurrence: None)
  Receive Date: 20140718
  Receipt Date: 20140807
  Transmission Date: 20150326
  Serious: Yes (Life-Threatening, Hospitalization, Other)
  Sender: FDA-Public Use
  Company Number: 003-203

PATIENT
  Age: 83 Year
  Sex: Female

DRUGS (1)
  1. CROFAB [Suspect]
     Active Substance: CROTALIDAE POLYVALENT IMMUNE FAB (OVINE)
     Indication: SNAKE BITE
     Dates: start: 20140709

REACTIONS (6)
  - Hypotension [None]
  - Nausea [None]
  - Wound secretion [None]
  - Peripheral swelling [None]
  - Thrombocytopenia [None]
  - Skin discolouration [None]

NARRATIVE: CASE EVENT DATE: 20140709
